FAERS Safety Report 16121498 (Version 1)
Quarter: 2019Q1

REPORT INFORMATION
  Report Type: Spontaneous
  Country: US (occurrence: US)
  Receive Date: 20190222
  Receipt Date: 20190222
  Transmission Date: 20190418
  Serious: No
  Sender: FDA-Public Use
  Company Number: None

PATIENT
  Age: 52 Year
  Sex: Male

DRUGS (1)
  1. SIMPONI [Suspect]
     Active Substance: GOLIMUMAB
     Dates: start: 20181027

REACTIONS (4)
  - Arthralgia [None]
  - Therapy cessation [None]
  - Back pain [None]
  - Product distribution issue [None]

NARRATIVE: CASE EVENT DATE: 20190205
